FAERS Safety Report 4654090-1 (Version None)
Quarter: 2005Q2

REPORT INFORMATION
  Report Type: 
  Country: None (occurrence: None)
  Receive Date: 20050504
  Receipt Date: 20050419
  Transmission Date: 20051028
  Serious: Yes (Other)
  Sender: FDA-Public Use
  Company Number: DE-2005-002770

PATIENT
  Age: 41 Year
  Sex: Female

DRUGS (1)
  1. MIRENA [Suspect]
     Indication: CONTRACEPTION
     Dosage: 20 UG/DAY, CON, INTRA-UTERINE
     Route: 015
     Dates: start: 20040209, end: 20040812

REACTIONS (13)
  - ALCOHOL INTOLERANCE [None]
  - ARTHRALGIA [None]
  - ASTHENIA [None]
  - CHOLESTASIS [None]
  - FEBRILE INFECTION [None]
  - GASTRIC HAEMORRHAGE [None]
  - GASTRITIS EROSIVE [None]
  - GENERAL PHYSICAL HEALTH DETERIORATION [None]
  - HEADACHE [None]
  - HEPATITIS TOXIC [None]
  - HEPATOMEGALY [None]
  - MYALGIA [None]
  - RED BLOOD CELL SEDIMENTATION RATE INCREASED [None]
